FAERS Safety Report 6651687-4 (Version None)
Quarter: 2010Q1

REPORT INFORMATION
  Report Type: 
  Country: None (occurrence: None)
  Receive Date: 20100322
  Receipt Date: 20100308
  Transmission Date: 20100710
  Serious: Yes (Death)
  Sender: FDA-Public Use
  Company Number: 1000012332

PATIENT
  Sex: Male
  Weight: 3.6 kg

DRUGS (2)
  1. CARBAMAZEPINE [Suspect]
     Dosage: TRANSPLACENTAL
     Route: 064
  2. PHENYTOIN [Suspect]
     Dosage: TRANSPLACENTAL
     Route: 064

REACTIONS (4)
  - FOETAL ANTICONVULSANT SYNDROME [None]
  - MATERNAL DRUGS AFFECTING FOETUS [None]
  - NEONATAL ASPHYXIA [None]
  - RESPIRATORY DISTRESS [None]
